FAERS Safety Report 14269456 (Version 1)
Quarter: 2017Q4

REPORT INFORMATION
  Report Type: Spontaneous
  Country: US (occurrence: US)
  Receive Date: 20171211
  Receipt Date: 20171211
  Transmission Date: 20180321
  Serious: Yes (Other)
  Sender: FDA-Public Use
  Company Number: US-OTSUKA-2017_010601

PATIENT
  Age: 33 Year

DRUGS (2)
  1. ABILIFY [Suspect]
     Active Substance: ARIPIPRAZOLE
     Indication: POST-TRAUMATIC STRESS DISORDER
     Dosage: UNK
     Route: 065
  2. ABILIFY [Suspect]
     Active Substance: ARIPIPRAZOLE
     Indication: BIPOLAR DISORDER
     Dosage: 5 MG, BID
     Route: 065
     Dates: start: 201502, end: 201702

REACTIONS (10)
  - Injury [Unknown]
  - Neuropsychiatric symptoms [Unknown]
  - Gambling [Recovered/Resolved]
  - Obsessive-compulsive disorder [Unknown]
  - Off label use [Unknown]
  - Impulsive behaviour [Recovered/Resolved]
  - Suicidal ideation [Recovered/Resolved]
  - Psychosexual disorder [Recovered/Resolved]
  - Suicide attempt [Recovered/Resolved]
  - Emotional distress [Unknown]

NARRATIVE: CASE EVENT DATE: 201502
